FAERS Safety Report 9266004 (Version 2)
Quarter: 2013Q2

REPORT INFORMATION
  Report Type: Report from Study
  Country: FR (occurrence: FR)
  Receive Date: 20130501
  Receipt Date: 20130510
  Transmission Date: 20140414
  Serious: Yes (Hospitalization)
  Sender: FDA-Public Use
  Company Number: FR-MERCK-1304FRA017484

PATIENT
  Age: 46 Year
  Sex: Female
  Weight: 64 kg

DRUGS (5)
  1. AERIUS [Suspect]
     Indication: BREAST CANCER
     Route: 048
  2. RHUPH20 [Suspect]
     Indication: BREAST CANCER
     Dosage: 100 MG ONCE EVERY 3 WEEKS
     Route: 058
     Dates: start: 20130322
  3. TRASTUZUMAB [Suspect]
     Indication: BREAST CANCER
     Dosage: 100 MG ONCE IN THREE WEEKS
     Route: 058
     Dates: start: 20130322
  4. DEXERYL CREAM [Suspect]
     Indication: BREAST CANCER
     Route: 065
  5. TAXOTERE [Concomitant]
     Dosage: UNK
     Dates: start: 20130322

REACTIONS (2)
  - Febrile neutropenia [Recovering/Resolving]
  - Oedema peripheral [Recovered/Resolved]
